FAERS Safety Report 4411703-7 (Version None)
Quarter: 2004Q3

REPORT INFORMATION
  Report Type: 
  Country: None (occurrence: None)
  Receive Date: 20040729
  Receipt Date: 20040715
  Transmission Date: 20050211
  Serious: No
  Sender: FDA-Public Use
  Company Number: 2004GB01743

PATIENT
  Sex: Male

DRUGS (4)
  1. CRESTOR [Suspect]
     Indication: LOW DENSITY LIPOPROTEIN INCREASED
     Dosage: 40 MG DAILY IPO
     Route: 048
     Dates: start: 20030901
  2. LISINOPRIL [Suspect]
     Dosage: 40 MG DAILY PO
     Route: 048
  3. ATORVASTATIN CALCIUM [Concomitant]
  4. FIBRATE [Concomitant]

REACTIONS (1)
  - HYPERKALAEMIA [None]
